FAERS Safety Report 11719779 (Version 1)
Quarter: 2015Q4

REPORT INFORMATION
  Report Type: Spontaneous
  Country: US (occurrence: US)
  Receive Date: 20151110
  Receipt Date: 20151110
  Transmission Date: 20160304
  Serious: No
  Sender: FDA-Public Use
  Company Number: US-009507513-1511USA005557

PATIENT
  Sex: Female
  Weight: 99.32 kg

DRUGS (1)
  1. NEXPLANON [Suspect]
     Active Substance: ETONOGESTREL
     Indication: CONTRACEPTION
     Dosage: 3 YEARS FREQUENCY
     Route: 059
     Dates: start: 20141009

REACTIONS (3)
  - Menorrhagia [Unknown]
  - Menstrual disorder [Unknown]
  - Abdominal pain [Unknown]
